FAERS Safety Report 7005043-X (Version None)
Quarter: 2010Q3

REPORT INFORMATION
  Report Type: 
  Country: None (occurrence: None)
  Receive Date: 20100921
  Receipt Date: 20100913
  Transmission Date: 20110219
  Serious: Yes (Hospitalization, Other)
  Sender: FDA-Public Use
  Company Number: US-SANOFI-AVENTIS-2010SA055403

PATIENT
  Age: 54 Year
  Sex: Female
  Weight: 82 kg

DRUGS (4)
  1. LANTUS [Suspect]
     Indication: TYPE 2 DIABETES MELLITUS
     Dosage: DOSE:15 UNIT(S)
     Route: 058
     Dates: start: 20100701
  2. LANTUS [Suspect]
     Dosage: DOSE:35 UNIT(S)
     Route: 058
  3. SOLOSTAR [Suspect]
     Indication: TYPE 2 DIABETES MELLITUS
  4. HUMALOG [Concomitant]
     Indication: TYPE 2 DIABETES MELLITUS

REACTIONS (8)
  - DEPRESSION [None]
  - FALL [None]
  - FEELING ABNORMAL [None]
  - HEADACHE [None]
  - HYPERGLYCAEMIA [None]
  - HYPERTENSION [None]
  - LOSS OF CONSCIOUSNESS [None]
  - MALAISE [None]
